FAERS Safety Report 4800003-9 (Version None)
Quarter: 2005Q4

REPORT INFORMATION
  Report Type: 
  Country: None (occurrence: None)
  Receive Date: 20051013
  Receipt Date: 20050930
  Transmission Date: 20060501
  Serious: Yes (Death, Life-Threatening, Hospitalization, Other)
  Sender: FDA-Public Use
  Company Number: 2005043552

PATIENT
  Age: 94 Year
  Sex: Female

DRUGS (5)
  1. CELECOXIB (CELECOXIB) [Suspect]
     Indication: PERIARTHRITIS
     Dosage: 200 MG (200 MG, 1 IN 1 D), ORAL
     Route: 048
     Dates: start: 20041108, end: 20050118
  2. CO-TRIAMTERIZIDE (HYDROCHLOROTHIAZIDE, TRIAMTERENE) [Concomitant]
  3. AMLODIPINE [Concomitant]
  4. ATENOLOL [Concomitant]
  5. DOXAZOSIN (DOXAZOSIN) [Concomitant]

REACTIONS (11)
  - ANOREXIA [None]
  - BLOOD PRESSURE DECREASED [None]
  - GASTRIC ULCER PERFORATION [None]
  - GASTRODUODENAL ULCER [None]
  - GASTROINTESTINAL HAEMORRHAGE [None]
  - HAEMATOMA [None]
  - HAEMOGLOBIN DECREASED [None]
  - MALAISE [None]
  - PALLOR [None]
  - PEPTIC ULCER [None]
  - RENAL IMPAIRMENT [None]
